FAERS Safety Report 5087901-9 (Version None)
Quarter: 2006Q3

REPORT INFORMATION
  Report Type: 
  Country: None (occurrence: None)
  Receive Date: 20060821
  Receipt Date: 20060821
  Transmission Date: 20061208
  Serious: No
  Sender: FDA-Public Use
  Company Number: None

PATIENT
  Age: 40 Year
  Sex: Male
  Weight: 102.0593 kg

DRUGS (1)
  1. LIDOCAINE HYDROCHLORIDE 2% INJ [Suspect]
     Indication: NERVE BLOCK
     Dosage: 400MG  ONCE  SUBCU
     Route: 058
     Dates: start: 20060817

REACTIONS (3)
  - DRUG INEFFECTIVE [None]
  - HAEMODYNAMIC INSTABILITY [None]
  - PROCEDURAL PAIN [None]
